FAERS Safety Report 15862464 (Version 2)
Quarter: 2019Q2

REPORT INFORMATION
  Report Type: Spontaneous
  Country: DE (occurrence: DE)
  Receive Date: 20190124
  Receipt Date: 20190416
  Transmission Date: 20190711
  Serious: Yes (Hospitalization)
  Sender: FDA-Public Use
  Company Number: PHHY2019DE012563

PATIENT
  Age: 71 Year
  Sex: Female

DRUGS (5)
  1. EXTAVIA [Suspect]
     Active Substance: INTERFERON BETA-1B
     Dosage: 250 UG, QMO
     Route: 065
  2. EXTAVIA [Suspect]
     Active Substance: INTERFERON BETA-1B
     Dosage: 250 UG, QW
     Route: 065
  3. EXTAVIA [Suspect]
     Active Substance: INTERFERON BETA-1B
     Indication: MULTIPLE SCLEROSIS
     Dosage: 250 UG, QOD
     Route: 065
  4. EXTAVIA [Suspect]
     Active Substance: INTERFERON BETA-1B
     Dosage: 250 UG, (2X PER MONTH)
     Route: 065
  5. EXTAVIA [Suspect]
     Active Substance: INTERFERON BETA-1B
     Dosage: 250 UG, QOD
     Route: 065

REACTIONS (7)
  - Inflammation [Unknown]
  - Multiple sclerosis relapse [Unknown]
  - Nodule [Unknown]
  - Anxiety [Unknown]
  - Urticaria [Unknown]
  - Device intolerance [Unknown]
  - Inappropriate schedule of product administration [Unknown]
